FAERS Safety Report 7591400-X (Version None)
Quarter: 2011Q3

REPORT INFORMATION
  Report Type: 
  Country: None (occurrence: None)
  Receive Date: 20110706
  Receipt Date: 20110623
  Transmission Date: 20111222
  Serious: Yes (Death, Hospitalization, Other)
  Sender: FDA-Public Use
  Company Number: US-AMGEN-USASP2011032553

PATIENT
  Sex: Female

DRUGS (1)
  1. PROCRIT [Suspect]
     Indication: ANAEMIA
     Dosage: UNK
     Dates: start: 20110302, end: 20110302

REACTIONS (6)
  - ANAEMIA [None]
  - CARDIOPULMONARY FAILURE [None]
  - BLOOD DISORDER [None]
  - GASTRIC DISORDER [None]
  - MALAISE [None]
  - HAEMORRHAGE [None]
